FAERS Safety Report 4599313-2 (Version None)
Quarter: 2005Q1

REPORT INFORMATION
  Report Type: 
  Country: None (occurrence: None)
  Receive Date: 20050302
  Receipt Date: 20050302
  Transmission Date: 20050727
  Serious: Yes (Other)
  Sender: FDA-Public Use
  Company Number: None

PATIENT
  Age: 80 Year
  Sex: Female
  Weight: 50.8029 kg

DRUGS (1)
  1. WARFARIN SODIUM [Suspect]

REACTIONS (2)
  - INTERNATIONAL NORMALISED RATIO INCREASED [None]
  - OESOPHAGEAL ULCER HAEMORRHAGE [None]
